FAERS Safety Report 9322940 (Version 2)
Quarter: 2013Q3

REPORT INFORMATION
  Report Type: Report from Study
  Country: US (occurrence: US)
  Receive Date: 20130603
  Receipt Date: 20130817
  Transmission Date: 20140515
  Serious: Yes (Death)
  Sender: FDA-Public Use
  Company Number: US-ROCHE-1231426

PATIENT
  Sex: Male
  Weight: 113 kg

DRUGS (4)
  1. ZELBORAF [Suspect]
     Indication: MALIGNANT MELANOMA
     Route: 048
     Dates: start: 20130115, end: 20130522
  2. ZELBORAF [Suspect]
     Route: 048
  3. IL-2 [Concomitant]
  4. IPILIMUMAB [Concomitant]

REACTIONS (1)
  - Malignant melanoma [Fatal]
